FAERS Safety Report 4831851-7 (Version None)
Quarter: 2005Q4

REPORT INFORMATION
  Report Type: 
  Country: None (occurrence: None)
  Receive Date: 20051118
  Receipt Date: 20050916
  Transmission Date: 20060501
  Serious: Yes (Hospitalization)
  Sender: FDA-Public Use
  Company Number: GB-SANOFI-SYNTHELABO-D01200506540

PATIENT
  Sex: Male
  Weight: 57 kg

DRUGS (8)
  1. CLOPIDOGREL BISULFATE [Suspect]
     Indication: ATRIAL FIBRILLATION
     Route: 048
     Dates: start: 20041026, end: 20050915
  2. IRBESARTAN [Suspect]
     Indication: ATRIAL FIBRILLATION
     Dosage: 150 MG/DAY FOR 2 WEEKS FOLLOWING BY 300 MG/DAY
     Route: 048
     Dates: start: 20041026
  3. ASPIRIN [Concomitant]
     Indication: ATRIAL FIBRILLATION
     Dosage: 75 MG
     Route: 048
     Dates: start: 20041026
  4. ASACOL [Concomitant]
  5. DIGOXIN [Concomitant]
  6. BUMETANIDE [Concomitant]
  7. LISINOPRIL [Concomitant]
  8. PREDNISOLONE [Concomitant]

REACTIONS (3)
  - CLOSTRIDIUM COLITIS [None]
  - LOWER GASTROINTESTINAL HAEMORRHAGE [None]
  - RECTAL HAEMORRHAGE [None]
